FAERS Safety Report 9852648 (Version 2)
Quarter: 2014Q2

REPORT INFORMATION
  Report Type: Spontaneous
  Country: GB (occurrence: GB)
  Receive Date: 20140129
  Receipt Date: 20140429
  Transmission Date: 20141212
  Serious: Yes (Other)
  Sender: FDA-Public Use
  Company Number: GB-VERTEX PHARMACEUTICALS INC-2014-000433

PATIENT
  Sex: 0

DRUGS (4)
  1. INCIVO [Suspect]
     Indication: HEPATITIS C
     Route: 065
  2. INCIVO [Suspect]
     Route: 065
  3. PEG-INTERFERON [Suspect]
     Indication: HEPATITIS C
     Route: 065
  4. RIBAVIRIN [Suspect]
     Indication: HEPATITIS C
     Route: 065

REACTIONS (49)
  - Depression [Unknown]
  - Weight decreased [Unknown]
  - Hallucination [Unknown]
  - Confusional state [Unknown]
  - Urinary tract infection [Unknown]
  - Lower respiratory tract infection [Unknown]
  - Dyspnoea [Unknown]
  - Tremor [Unknown]
  - Self-injurious ideation [Unknown]
  - Colitis [Unknown]
  - Neutropenia [Unknown]
  - Blood urea increased [Unknown]
  - Pancreatitis [Unknown]
  - Hypokalaemia [Unknown]
  - Jaundice [Unknown]
  - Haematochezia [Unknown]
  - Rash [Unknown]
  - Thrombocytopenia [Unknown]
  - Anaemia [Unknown]
  - Peripheral swelling [Unknown]
  - Thirst [Unknown]
  - Pain [Unknown]
  - Lethargy [Unknown]
  - Alopecia [Unknown]
  - Cough [Unknown]
  - Vision blurred [Unknown]
  - Dyspepsia [Unknown]
  - Sleep disorder [Unknown]
  - Oropharyngeal pain [Unknown]
  - Headache [Unknown]
  - Mouth ulceration [Unknown]
  - Anorectal disorder [Unknown]
  - Decreased appetite [Unknown]
  - Muscle spasms [Unknown]
  - Anxiety [Unknown]
  - Chest pain [Unknown]
  - Eye pruritus [Unknown]
  - Dyspepsia [Unknown]
  - Arthralgia [Unknown]
  - Dizziness [Unknown]
  - Mood swings [Unknown]
  - Myalgia [Unknown]
  - Abdominal pain upper [Unknown]
  - Tongue disorder [Unknown]
  - Epistaxis [Unknown]
  - Palpitations [Unknown]
  - Nausea [Unknown]
  - Diarrhoea [Unknown]
  - Dysgeusia [Unknown]
